FAERS Safety Report 4301118-4 (Version None)
Quarter: 2004Q1

REPORT INFORMATION
  Report Type: 
  Country: None (occurrence: None)
  Receive Date: 20040218
  Receipt Date: 20030829
  Transmission Date: 20041129
  Serious: No
  Sender: FDA-Public Use
  Company Number: A02200302177

PATIENT
  Age: 42 Year
  Sex: Male

DRUGS (3)
  1. ARIXTRA [Suspect]
     Indication: DEEP VENOUS THROMBOSIS PROPHYLAXIS
     Dosage: 2.5 MG OD SUBCUTANEOUS
     Route: 058
     Dates: start: 20030708, end: 20030713
  2. VIOXX [Suspect]
     Indication: OSTEOARTHRITIS
     Dosage: ORAL
     Route: 048
     Dates: end: 20030713
  3. VANCOMYCIN [Concomitant]

REACTIONS (2)
  - HEPATITIS CHOLESTATIC [None]
  - PROTHROMBIN TIME PROLONGED [None]
